FAERS Safety Report 26099071 (Version 1)
Quarter: 2025Q4

REPORT INFORMATION
  Report Type: Spontaneous
  Country: US (occurrence: US)
  Receive Date: 20251128
  Receipt Date: 20251128
  Transmission Date: 20260118
  Serious: No
  Sender: ROCHE
  Company Number: US-ROCHE-10000444407

PATIENT
  Age: 54 Year
  Sex: Female

DRUGS (7)
  1. RITUXIMAB [Suspect]
     Active Substance: RITUXIMAB
     Indication: Dermatomyositis
     Dosage: 1 G IV X 2 FOR 2 CYCLES
     Route: 042
  2. DEUCRAVACITINIB [Concomitant]
     Active Substance: DEUCRAVACITINIB
  3. PREDNISONE [Concomitant]
     Active Substance: PREDNISONE
  4. CLOBETASOL [Concomitant]
     Active Substance: CLOBETASOL
  5. SALICYLIC ACID [Concomitant]
     Active Substance: SALICYLIC ACID
  6. CLINDAMYCIN [Concomitant]
     Active Substance: CLINDAMYCIN
  7. TOFACITINIB [Concomitant]
     Active Substance: TOFACITINIB

REACTIONS (2)
  - Drug ineffective [Unknown]
  - No adverse event [Unknown]
